FAERS Safety Report 13586499 (Version 1)
Quarter: 2017Q2

REPORT INFORMATION
  Report Type: Spontaneous
  Country: US (occurrence: US)
  Receive Date: 20170525
  Receipt Date: 20170525
  Transmission Date: 20170830
  Serious: No
  Sender: FDA-Public Use
  Company Number: None

PATIENT
  Age: 33 Year
  Sex: Female

DRUGS (1)
  1. SUBOXONE [Suspect]
     Active Substance: BUPRENORPHINE HYDROCHLORIDE\NALOXONE HYDROCHLORIDE
     Indication: DRUG USE DISORDER
     Dosage: 8/2 MG 1 1/2 TAB S.L. QD
     Route: 060
     Dates: start: 20170313, end: 20170410

REACTIONS (2)
  - Stomatitis [None]
  - Product substitution issue [None]

NARRATIVE: CASE EVENT DATE: 20170313
